FAERS Safety Report 8073648-3 (Version None)
Quarter: 2012Q1

REPORT INFORMATION
  Report Type: 
  Country: None (occurrence: None)
  Receive Date: 20120126
  Receipt Date: 20120119
  Transmission Date: 20120608
  Serious: Yes (Death)
  Sender: FDA-Public Use
  Company Number: ID-ROCHE-1022903

PATIENT
  Age: 29 Year
  Sex: Female

DRUGS (2)
  1. TAMIFLU [Suspect]
     Dates: start: 20111010, end: 20111013
  2. TAMIFLU [Suspect]
     Indication: PROPHYLAXIS
     Dates: start: 20111008, end: 20111010

REACTIONS (1)
  - INFLUENZA [None]
